FAERS Safety Report 6702283-1 (Version None)
Quarter: 2010Q2

REPORT INFORMATION
  Report Type: 
  Country: None (occurrence: None)
  Receive Date: 20100429
  Receipt Date: 20100419
  Transmission Date: 20101027
  Serious: Yes (Hospitalization)
  Sender: FDA-Public Use
  Company Number: GXKR2010IN04399

PATIENT
  Age: 65 Year
  Sex: Female

DRUGS (6)
  1. CHLORPROMAZINE [Suspect]
     Indication: SCHIZOPHRENIA
     Dosage: 1200 MG, UNK
     Route: 065
  2. CHLORPROMAZINE [Suspect]
     Dosage: 100 MG/DAY
     Route: 065
  3. HALOPERIDOL (NGX) [Suspect]
     Indication: SCHIZOPHRENIA
     Dosage: 80 MG, UNK
     Route: 065
  4. HALOPERIDOL (NGX) [Suspect]
     Dosage: 15 MG/DAY
     Route: 065
  5. TRIHEXYPHENIDYL (NGX) [Suspect]
     Indication: SCHIZOPHRENIA
     Dosage: 10 MG, UNK
     Route: 065
  6. TRIHEXYPHENIDYL (NGX) [Suspect]
     Dosage: 6 MG/DAY
     Route: 065

REACTIONS (9)
  - CREPITATIONS [None]
  - DYSPNOEA [None]
  - HEART RATE IRREGULAR [None]
  - HYPOVENTILATION [None]
  - LOSS OF CONSCIOUSNESS [None]
  - METABOLIC ACIDOSIS [None]
  - MYOCARDITIS [None]
  - OVERDOSE [None]
  - PALLOR [None]
